FAERS Safety Report 17734430 (Version 3)
Quarter: 2020Q2

REPORT INFORMATION
  Report Type: Report from Study
  Country: BE (occurrence: BE)
  Receive Date: 20200501
  Receipt Date: 20200622
  Transmission Date: 20200714
  Serious: Yes (Hospitalization, Other)
  Sender: FDA-Public Use
  Company Number: BE-GILEAD-2020-0463234

PATIENT
  Age: 26 Year
  Sex: Female
  Weight: 63.9 kg

DRUGS (13)
  1. AXICABTAGENE CILOLEUCEL [Suspect]
     Active Substance: AXICABTAGENE CILOLEUCEL
     Indication: PRIMARY MEDIASTINAL LARGE B-CELL LYMPHOMA REFRACTORY
     Dosage: UNK
     Route: 042
     Dates: start: 20190916, end: 20190916
  2. PRIVIGEN [Suspect]
     Active Substance: HUMAN IMMUNOGLOBULIN G
     Indication: HYPOGAMMAGLOBULINAEMIA
  3. DAFALGAN [Concomitant]
     Active Substance: ACETAMINOPHEN
     Dosage: UNK
  4. FOLAVIT [Concomitant]
     Active Substance: FOLIC ACID
     Dosage: UNK
     Dates: start: 20190911
  5. XARELTO [Concomitant]
     Active Substance: RIVAROXABAN
     Indication: SUPERIOR VENA CAVA SYNDROME
     Dosage: UNK
     Dates: start: 20200412
  6. PRIVIGEN [Suspect]
     Active Substance: HUMAN IMMUNOGLOBULIN G
     Indication: LYMPHOCYTE COUNT DECREASED
     Dosage: 22.5 MG, ONCE; 0.4 MG/KG
     Route: 042
     Dates: start: 20200428, end: 20200428
  7. EUSAPRIM [Concomitant]
     Active Substance: SULFAMETHOXAZOLE\TRIMETHOPRIM
     Indication: PROPHYLAXIS
     Dosage: UNK
     Route: 065
     Dates: start: 20200426
  8. FRAXODI [Concomitant]
     Active Substance: NADROPARIN CALCIUM
     Indication: SUPERIOR VENA CAVA SYNDROME
     Dosage: UNK
     Dates: start: 20191003
  9. ZOVIRAX [Concomitant]
     Active Substance: ACYCLOVIR
     Dosage: UNK
  10. PLAQUENIL [HYDROXYCHLOROQUINE PHOSPHATE] [Suspect]
     Active Substance: HYDROXYCHLOROQUINE DIPHOSPHATE
     Indication: COVID-19
     Dosage: 400 MG
     Route: 065
     Dates: start: 20200426, end: 20200427
  11. CERAZETTE [DESOGESTREL] [Concomitant]
     Active Substance: DESOGESTREL
     Dosage: UNK
  12. PANTOMED [PANTOPRAZOLE SODIUM SESQUIHYDRATE] [Concomitant]
     Active Substance: PANTOPRAZOLE SODIUM
     Dosage: UNK
  13. NEUPOGEN [Concomitant]
     Active Substance: FILGRASTIM

REACTIONS (3)
  - Drug hypersensitivity [Recovered/Resolved]
  - SARS-CoV-2 test positive [Recovered/Resolved]
  - Pancytopenia [Recovered/Resolved]

NARRATIVE: CASE EVENT DATE: 20200425
